FAERS Safety Report 6698577-9 (Version None)
Quarter: 2010Q2

REPORT INFORMATION
  Report Type: 
  Country: None (occurrence: None)
  Receive Date: 20100426
  Receipt Date: 20100426
  Transmission Date: 20101027
  Serious: Yes (Disabling)
  Sender: FDA-Public Use
  Company Number: None

PATIENT
  Age: 26 Year
  Sex: Male

DRUGS (1)
  1. HYDROXYZINE [Suspect]
     Dosage: 50MG HS PO
     Route: 048

REACTIONS (1)
  - PRIAPISM [None]
